FAERS Safety Report 10412107 (Version 1)
Quarter: 2014Q3

REPORT INFORMATION
  Report Type: Report from Study
  Country: US (occurrence: US)
  Receive Date: 20140827
  Receipt Date: 20140827
  Transmission Date: 20150326
  Serious: Yes (Other)
  Sender: FDA-Public Use
  Company Number: US-CELGENEUS-163-21880-14084415

PATIENT

DRUGS (8)
  1. REVLIMID [Suspect]
     Active Substance: LENALIDOMIDE
     Indication: CHRONIC LYMPHOCYTIC LEUKAEMIA
     Dosage: 5 MILLIGRAM
     Route: 048
  2. ACYCLOVIR. [Concomitant]
     Active Substance: ACYCLOVIR
     Indication: ANTIVIRAL PROPHYLAXIS
     Route: 065
  3. ASPIRIN. [Concomitant]
     Active Substance: ASPIRIN
     Indication: THROMBOSIS PROPHYLAXIS
     Dosage: 81 MILLIGRAM
     Route: 065
  4. REVLIMID [Suspect]
     Active Substance: LENALIDOMIDE
     Dosage: 10 MILLIGRAM
     Route: 048
  5. OFATUMUMAB [Suspect]
     Active Substance: OFATUMUMAB
     Indication: CHRONIC LYMPHOCYTIC LEUKAEMIA
     Dosage: 300 MILLIGRAM
     Route: 041
  6. SULFAMETHOXAZOLE AND TRIMETHOPRIM [Concomitant]
     Active Substance: SULFAMETHOXAZOLE\TRIMETHOPRIM
     Indication: INFECTION PROPHYLAXIS
     Route: 065
  7. OFATUMUMAB [Suspect]
     Active Substance: OFATUMUMAB
     Dosage: 2000 MILLIGRAM
     Route: 041
  8. ASPIRIN. [Concomitant]
     Active Substance: ASPIRIN
     Dosage: 325 MILLIGRAM
     Route: 065

REACTIONS (16)
  - Fatigue [Unknown]
  - Chronic lymphocytic leukaemia [Unknown]
  - Hypernatraemia [Unknown]
  - Dizziness [Unknown]
  - Aspartate aminotransferase increased [Unknown]
  - Tumour flare [Unknown]
  - Blood lactate dehydrogenase increased [Unknown]
  - Hyperglycaemia [Unknown]
  - Neutropenia [Unknown]
  - Thrombocytopenia [Unknown]
  - Dyspnoea [Unknown]
  - Infusion related reaction [Unknown]
  - Tachycardia [Unknown]
  - Blood creatinine increased [Unknown]
  - Hypoalbuminaemia [Unknown]
  - Cough [Unknown]
